FAERS Safety Report 6074792-2 (Version None)
Quarter: 2009Q1

REPORT INFORMATION
  Report Type: 
  Country: None (occurrence: None)
  Receive Date: 20090209
  Receipt Date: 20090209
  Transmission Date: 20090719
  Serious: No
  Sender: FDA-Public Use
  Company Number: None

PATIENT
  Sex: Female
  Weight: 107.9561 kg

DRUGS (4)
  1. COREG CR [Suspect]
     Indication: CARDIOMYOPATHY
     Dosage: 40MG ONCE PO DAILY PO
     Route: 048
     Dates: start: 20070621, end: 20070627
  2. COREG CR [Suspect]
     Indication: VENTRICULAR TACHYCARDIA
     Dosage: 40MG ONCE PO DAILY PO
     Route: 048
     Dates: start: 20070621, end: 20070627
  3. CARVEDILOL [Suspect]
     Indication: CARDIOMYOPATHY
     Dosage: 12.5 MG ONCE PO BID PO
     Route: 048
     Dates: start: 20071001, end: 20071112
  4. CARVEDILOL [Suspect]
     Indication: VENTRICULAR TACHYCARDIA
     Dosage: 12.5 MG ONCE PO BID PO
     Route: 048
     Dates: start: 20071001, end: 20071112

REACTIONS (4)
  - DIZZINESS [None]
  - HYPERTENSION [None]
  - PAIN IN EXTREMITY [None]
  - WHEEZING [None]
